FAERS Safety Report 24365518 (Version 1)
Quarter: 2024Q3

REPORT INFORMATION
  Report Type: Spontaneous
  Country: US (occurrence: US)
  Receive Date: 20240926
  Receipt Date: 20240926
  Transmission Date: 20241017
  Serious: Yes (Other)
  Sender: DR REDDYS
  Company Number: US-DRL-USA-SPO/USA/24/0013879

PATIENT
  Age: 38 Year
  Sex: Male

DRUGS (9)
  1. CARBIDOPA\LEVODOPA [Suspect]
     Active Substance: CARBIDOPA\LEVODOPA
     Indication: Parkinson^s disease
  2. CARBIDOPA\LEVODOPA [Suspect]
     Active Substance: CARBIDOPA\LEVODOPA
  3. OLANZAPINE [Suspect]
     Active Substance: OLANZAPINE
     Indication: Hyperkinesia
     Dosage: IN THREE DIVIDED DOSES
  4. OLANZAPINE [Suspect]
     Active Substance: OLANZAPINE
  5. RASAGILINE [Concomitant]
     Active Substance: RASAGILINE\RASAGILINE MESYLATE
     Indication: Parkinson^s disease
  6. ENTACAPONE [Concomitant]
     Active Substance: ENTACAPONE
     Indication: Parkinson^s disease
  7. ENTACAPONE [Concomitant]
     Active Substance: ENTACAPONE
     Dosage: AT NIGHT
  8. LORAZEPAM [Concomitant]
     Active Substance: LORAZEPAM
     Indication: Parkinson^s disease
     Dosage: IN THREE DIVIDED DOSES
  9. LORAZEPAM [Concomitant]
     Active Substance: LORAZEPAM

REACTIONS (3)
  - Dyskinesia [Unknown]
  - Therapeutic response shortened [Unknown]
  - Drug ineffective for unapproved indication [Unknown]
